FAERS Safety Report 25246360 (Version 2)
Quarter: 2025Q2

REPORT INFORMATION
  Report Type: Spontaneous
  Country: CN (occurrence: CN)
  Receive Date: 20250428
  Receipt Date: 20250501
  Transmission Date: 20250717
  Serious: Yes (Other)
  Sender: ORGANON
  Company Number: CN-ORGANON-O2504CHN002429

PATIENT
  Age: 57 Year
  Sex: Female
  Weight: 65 kg

DRUGS (1)
  1. DIPROSPAN [Suspect]
     Active Substance: BETAMETHASONE DIPROPIONATE\BETAMETHASONE SODIUM PHOSPHATE
     Indication: Lumbar vertebral fracture
     Dosage: 1ML, QD, INTRA-ARTICULAR ADMINISTRATION||
     Route: 014
     Dates: start: 20250409, end: 20250409

REACTIONS (6)
  - Pruritus [Recovering/Resolving]
  - Macule [Recovering/Resolving]
  - Flushing [Recovering/Resolving]
  - Papule [Recovering/Resolving]
  - Dermatitis allergic [Recovered/Resolved]
  - Product use in unapproved indication [Unknown]

NARRATIVE: CASE EVENT DATE: 20250409
